FAERS Safety Report 24916677 (Version 1)
Quarter: 2025Q1

REPORT INFORMATION
  Report Type: Other
  Country: US (occurrence: US)
  Receive Date: 20250203
  Receipt Date: 20250203
  Transmission Date: 20250408
  Serious: Yes (Other)
  Sender: SERVIER
  Company Number: US-SERVIER-S25000971

PATIENT

DRUGS (23)
  1. ONCASPAR [Suspect]
     Active Substance: PEGASPARGASE
     Indication: B-cell type acute leukaemia
     Route: 042
  2. ONCASPAR [Suspect]
     Active Substance: PEGASPARGASE
     Route: 042
  3. PREDNISONE [Suspect]
     Active Substance: PREDNISONE
     Indication: B-cell type acute leukaemia
     Route: 065
  4. PREDNISONE [Suspect]
     Active Substance: PREDNISONE
     Route: 065
  5. VINCRISTINE [Suspect]
     Active Substance: VINCRISTINE
     Indication: B-cell type acute leukaemia
     Route: 065
  6. VINCRISTINE [Suspect]
     Active Substance: VINCRISTINE
     Route: 065
  7. DAUNORUBICIN [Suspect]
     Active Substance: DAUNORUBICIN
     Indication: B-cell type acute leukaemia
     Route: 065
  8. DAUNORUBICIN [Suspect]
     Active Substance: DAUNORUBICIN
     Route: 065
  9. CYCLOPHOSPHAMIDE [Suspect]
     Active Substance: CYCLOPHOSPHAMIDE
     Indication: B-cell type acute leukaemia
     Route: 065
  10. CYCLOPHOSPHAMIDE [Suspect]
     Active Substance: CYCLOPHOSPHAMIDE
     Indication: Neuroblastoma
     Route: 065
  11. MERCAPTOPURINE [Suspect]
     Active Substance: MERCAPTOPURINE
     Indication: B-cell type acute leukaemia
     Route: 065
  12. MERCAPTOPURINE [Suspect]
     Active Substance: MERCAPTOPURINE
     Route: 065
  13. CYTARABINE [Suspect]
     Active Substance: CYTARABINE
     Indication: B-cell type acute leukaemia
     Route: 037
  14. CYTARABINE [Suspect]
     Active Substance: CYTARABINE
     Route: 065
  15. CYTARABINE [Suspect]
     Active Substance: CYTARABINE
     Route: 065
  16. DEXAMETHASONE [Concomitant]
     Active Substance: DEXAMETHASONE
     Indication: B-cell type acute leukaemia
     Route: 065
  17. DEXAMETHASONE [Concomitant]
     Active Substance: DEXAMETHASONE
     Route: 037
  18. DEXAMETHASONE [Concomitant]
     Active Substance: DEXAMETHASONE
     Route: 065
  19. METHOTREXATE [Concomitant]
     Active Substance: METHOTREXATE
     Indication: B-cell type acute leukaemia
     Route: 037
  20. HYDROCORTISONE [Concomitant]
     Active Substance: HYDROCORTISONE
     Indication: B-cell type acute leukaemia
     Route: 037
  21. CARBOPLATIN [Concomitant]
     Active Substance: CARBOPLATIN
     Indication: Neuroblastoma
     Route: 065
  22. ETOPOSIDE [Concomitant]
     Active Substance: ETOPOSIDE
     Indication: Neuroblastoma
     Route: 065
  23. DOXORUBICIN [Concomitant]
     Active Substance: DOXORUBICIN
     Indication: Neuroblastoma
     Route: 065

REACTIONS (1)
  - Myelosuppression [Recovered/Resolved]
